FAERS Safety Report 25859433 (Version 2)
Quarter: 2025Q4

REPORT INFORMATION
  Report Type: Report from Study
  Country: US (occurrence: US)
  Receive Date: 20250929
  Receipt Date: 20251016
  Transmission Date: 20260119
  Serious: Yes (Death)
  Sender: ROCHE
  Company Number: US-ROCHE-10000397441

PATIENT
  Age: 80 Year
  Sex: Male

DRUGS (1)
  1. MYCOPHENOLATE MOFETIL [Suspect]
     Active Substance: MYCOPHENOLATE MOFETIL
     Indication: Renal transplant
     Dosage: TAKE 2 CAPS PO 2 TIMES DAILY
     Route: 048

REACTIONS (1)
  - Death [Fatal]

NARRATIVE: CASE EVENT DATE: 20250924
